FAERS Safety Report 7789910-5 (Version None)
Quarter: 2011Q3

REPORT INFORMATION
  Report Type: 
  Country: None (occurrence: None)
  Receive Date: 20110930
  Receipt Date: 20110606
  Transmission Date: 20111222
  Serious: No
  Sender: FDA-Public Use
  Company Number: US-ASTRAZENECA-2011SE34858

PATIENT
  Age: 61 Year
  Sex: Female
  Weight: 99.8 kg

DRUGS (3)
  1. VITAMIN TAB [Concomitant]
  2. ARIMIDEX [Suspect]
     Indication: BREAST CANCER
     Route: 048
  3. TYLENOL-500 [Concomitant]

REACTIONS (1)
  - CHROMATURIA [None]
